FAERS Safety Report 11212020 (Version 2)
Quarter: 2016Q1

REPORT INFORMATION
  Report Type: Spontaneous
  Country: US (occurrence: US)
  Receive Date: 20150623
  Receipt Date: 20160104
  Transmission Date: 20160525
  Serious: Yes (Death, Hospitalization)
  Sender: FDA-Public Use
  Company Number: US-HOSPIRA-2901873

PATIENT
  Age: 70 Year
  Sex: Male
  Weight: 93.5 kg

DRUGS (20)
  1. DEXAMETHASONE. [Concomitant]
     Active Substance: DEXAMETHASONE
     Indication: PREMEDICATION
     Route: 042
     Dates: start: 20150506, end: 20150518
  2. AMIODARONE [Concomitant]
     Active Substance: AMIODARONE
     Indication: HEART RATE IRREGULAR
     Dosage: 1 TABLET
     Route: 048
     Dates: start: 201405, end: 20150518
  3. NUCYNTA [Concomitant]
     Active Substance: TAPENTADOL HYDROCHLORIDE
     Indication: BACK PAIN
     Route: 048
     Dates: start: 201501, end: 20150518
  4. SPIRIVA [Concomitant]
     Active Substance: TIOTROPIUM BROMIDE MONOHYDRATE
     Indication: DYSPNOEA
     Route: 055
     Dates: start: 2010, end: 20150515
  5. IRINOTECAN HYDROCHLORIDE. [Suspect]
     Active Substance: IRINOTECAN HYDROCHLORIDE
     Indication: COLORECTAL CANCER METASTATIC
     Dosage: DAY 1 OF EACH 14 DAY CYCLE
     Route: 042
     Dates: start: 20150506, end: 20150518
  6. LEUCOVORIN                         /00566701/ [Concomitant]
     Active Substance: LEUCOVORIN
     Indication: COLORECTAL CANCER METASTATIC
     Route: 042
  7. VELIPARIB [Suspect]
     Active Substance: VELIPARIB
     Indication: COLORECTAL CANCER METASTATIC
     Dosage: DAY 2 THROUGH DAY 5 OF EACH 14 DAY CYCLE
     Route: 048
     Dates: start: 20150504, end: 20150506
  8. BEVACIZUMAB [Suspect]
     Active Substance: BEVACIZUMAB
     Indication: COLORECTAL CANCER METASTATIC
     Dosage: DAY 1 OF EACH 14 DAY CYCLE
     Route: 042
     Dates: start: 20150506, end: 20150506
  9. IMODIUM [Concomitant]
     Active Substance: LOPERAMIDE HYDROCHLORIDE
     Indication: DIARRHOEA
     Dosage: 1 TABLET
     Route: 048
     Dates: start: 20150507, end: 20150518
  10. ATORVASTATIN CALCIUM. [Concomitant]
     Active Substance: ATORVASTATIN CALCIUM
     Indication: HYPERCHOLESTEROLAEMIA
     Dosage: 1 TABLET
     Route: 048
     Dates: start: 2010, end: 20150518
  11. LOMOTIL [Concomitant]
     Active Substance: ATROPINE SULFATE\DIPHENOXYLATE HYDROCHLORIDE
     Indication: DIARRHOEA
     Dosage: 2.5/0.025
     Route: 048
     Dates: start: 20150508, end: 20150518
  12. PALONOSETRON [Concomitant]
     Active Substance: PALONOSETRON
     Indication: PREMEDICATION
     Route: 042
     Dates: start: 20150306, end: 20150518
  13. FLUOROURACIL. [Suspect]
     Active Substance: FLUOROURACIL
     Indication: COLORECTAL CANCER METASTATIC
     Route: 040
     Dates: start: 20150506, end: 20150506
  14. FLEXERIL [Concomitant]
     Active Substance: CYCLOBENZAPRINE HYDROCHLORIDE
     Indication: BACK PAIN
     Dosage: 1 TABLET
     Route: 048
     Dates: start: 2012, end: 20150518
  15. DIPHENOXYLATE/ATROPINE [Concomitant]
     Active Substance: ATROPINE\DIPHENOXYLATE
     Indication: DIARRHOEA
     Route: 048
     Dates: start: 20150508, end: 20150518
  16. FLUOROURACIL. [Suspect]
     Active Substance: FLUOROURACIL
     Indication: COLORECTAL CANCER METASTATIC
     Dosage: DAY 1 OF EACH 14 DAY CYCLE
     Route: 042
     Dates: start: 20150506, end: 20150508
  17. NEURONTIN [Concomitant]
     Active Substance: GABAPENTIN
     Indication: NERVE INJURY
     Dosage: 1 CAPSULE
     Route: 048
     Dates: start: 2012, end: 20150518
  18. NORTRIPTYLINE                      /00006502/ [Concomitant]
     Active Substance: NORTRIPTYLINE HYDROCHLORIDE
     Indication: NERVE INJURY
     Dosage: 1 CAPSULE
     Route: 048
     Dates: start: 2012, end: 20150518
  19. ATROPINE SULFATE. [Concomitant]
     Active Substance: ATROPINE SULFATE
     Indication: PREMEDICATION
     Route: 042
  20. MAGIC MOUTHWASH [Concomitant]
     Active Substance: DIPHENHYDRAMINE HYDROCHLORIDE\LIDOCAINE HYDROCHLORIDE\NYSTATIN
     Indication: MUCOSAL INFLAMMATION
     Route: 048
     Dates: start: 20150509, end: 20150518

REACTIONS (5)
  - Diarrhoea [Unknown]
  - Neutropenia [Recovered/Resolved]
  - Mucosal inflammation [Unknown]
  - Asthenia [Unknown]
  - Cardiac arrest [Fatal]

NARRATIVE: CASE EVENT DATE: 20150515
